FAERS Safety Report 5673241-3 (Version None)
Quarter: 2008Q1

REPORT INFORMATION
  Report Type: 
  Country: None (occurrence: None)
  Receive Date: 20080319
  Receipt Date: 20080312
  Transmission Date: 20080703
  Serious: Yes (Hospitalization, Other)
  Sender: FDA-Public Use
  Company Number: ES-ELI_LILLY_AND_COMPANY-ES200803003546

PATIENT
  Age: 72 Year
  Sex: Female

DRUGS (1)
  1. FORTEO [Suspect]
     Indication: OSTEOPOROSIS
     Dosage: 20 UG, UNKNOWN
     Route: 058
     Dates: start: 20071201, end: 20080101

REACTIONS (6)
  - DYSPNOEA [None]
  - FEELING ABNORMAL [None]
  - GENERALISED OEDEMA [None]
  - MOBILITY DECREASED [None]
  - TREATMENT NONCOMPLIANCE [None]
  - URINARY RETENTION [None]
